FAERS Safety Report 13567045 (Version 1)
Quarter: 2017Q2

REPORT INFORMATION
  Report Type: Spontaneous
  Country: US (occurrence: US)
  Receive Date: 20170522
  Receipt Date: 20170522
  Transmission Date: 20170830
  Serious: No
  Sender: FDA-Public Use
  Company Number: US-TEVA-710502USA

PATIENT

DRUGS (1)
  1. CIMETIDINE [Suspect]
     Active Substance: CIMETIDINE

REACTIONS (2)
  - Malaise [Unknown]
  - Product odour abnormal [Unknown]

NARRATIVE: CASE EVENT DATE: 2016
